FAERS Safety Report 9412463 (Version 1)
Quarter: 2013Q3

REPORT INFORMATION
  Report Type: Spontaneous
  Country: US (occurrence: US)
  Receive Date: 20130722
  Receipt Date: 20130722
  Transmission Date: 20140515
  Serious: No
  Sender: FDA-Public Use
  Company Number: US-US-EMD SERONO, INC.-7069442

PATIENT
  Sex: Female

DRUGS (4)
  1. REBIF [Suspect]
     Indication: MULTIPLE SCLEROSIS
     Route: 058
     Dates: start: 20030327, end: 20071023
  2. REBIF [Suspect]
     Route: 058
     Dates: start: 20080312, end: 20081031
  3. REBIF [Suspect]
     Route: 058
     Dates: start: 20081203, end: 20110830
  4. REBIF [Suspect]
     Route: 058
     Dates: start: 20120220, end: 20130114

REACTIONS (3)
  - Anxiety [Unknown]
  - Depression [Recovering/Resolving]
  - Influenza like illness [Unknown]
